FAERS Safety Report 9382063 (Version 1)
Quarter: 2013Q3

REPORT INFORMATION
  Report Type: Spontaneous
  Country: US (occurrence: None)
  Receive Date: 20130702
  Receipt Date: 20130702
  Transmission Date: 20140515
  Serious: Yes (Hospitalization)
  Sender: FDA-Public Use
  Company Number: DL2013-0501

PATIENT
  Age: 27 Year
  Sex: Female

DRUGS (3)
  1. MIFEPRISTONE TABLETS, 200 MG (DANCO LABS) [Suspect]
     Indication: ABORTION INDUCED
     Dosage: 200 MG, ORAL
     Route: 048
     Dates: start: 20130417
  2. MISOPROSTOL TABLETS, 200 MCG [Suspect]
     Dosage: 800 MCG, BUCCAL
     Route: 002
     Dates: start: 20130418
  3. AZITHROMYCIN [Concomitant]

REACTIONS (2)
  - Haemorrhage [None]
  - Anaemia [None]
